FAERS Safety Report 9558865 (Version 2)
Quarter: 2013Q4

REPORT INFORMATION
  Report Type: Spontaneous
  Country: AR (occurrence: AR)
  Receive Date: 20130927
  Receipt Date: 20131024
  Transmission Date: 20140711
  Serious: Yes (Other)
  Sender: FDA-Public Use
  Company Number: AR-AMGEN-ARGSP2013067778

PATIENT
  Age: 49 Year
  Sex: Male

DRUGS (8)
  1. ENBREL [Suspect]
     Indication: RHEUMATOID ARTHRITIS
     Dosage: 50 MG, WEEKLY
     Route: 065
     Dates: start: 20071120, end: 201212
  2. ENBREL [Suspect]
     Dosage: 50 MG, EVERY 15 DAYS
     Route: 065
     Dates: start: 201212
  3. LOSARTAN [Concomitant]
     Dosage: UNK
  4. DICLOFENAC [Concomitant]
     Dosage: UNK
  5. FOLIC ACID [Concomitant]
     Dosage: UNK
  6. OMEPRAZOL                          /00661201/ [Concomitant]
     Dosage: UNK
  7. METHOTREXAT                        /00113801/ [Concomitant]
     Dosage: UNK
  8. DIUREX                             /00206601/ [Concomitant]
     Dosage: UNK

REACTIONS (6)
  - Gallbladder disorder [Recovered/Resolved]
  - Osteosclerosis [Not Recovered/Not Resolved]
  - Middle ear disorder [Not Recovered/Not Resolved]
  - Hearing impaired [Not Recovered/Not Resolved]
  - Foot deformity [Recovered/Resolved]
  - Leukopenia [Recovering/Resolving]
